FAERS Safety Report 24194144 (Version 2)
Quarter: 2025Q1

REPORT INFORMATION
  Report Type: Spontaneous
  Country: IT (occurrence: IT)
  Receive Date: 20240809
  Receipt Date: 20250221
  Transmission Date: 20250409
  Serious: Yes (Hospitalization)
  Sender: RANBAXY
  Company Number: None

PATIENT
  Age: 45 Month
  Sex: Female

DRUGS (3)
  1. CETIRIZINE [Suspect]
     Active Substance: CETIRIZINE HYDROCHLORIDE
     Indication: Tonsillitis
     Route: 065
  2. LEVODROPROPIZINE [Suspect]
     Active Substance: LEVODROPROPIZINE
     Indication: Tonsillitis
     Route: 065
  3. ACETAMINOPHEN\AMBROXOL\CHLORPHENIRAMINE [Suspect]
     Active Substance: ACETAMINOPHEN\AMBROXOL\CHLORPHENIRAMINE
     Indication: Tonsillitis
     Route: 065

REACTIONS (1)
  - Stevens-Johnson syndrome [Recovered/Resolved]
